FAERS Safety Report 15677639 (Version 4)
Quarter: 2019Q3

REPORT INFORMATION
  Report Type: Report from Study
  Country: US (occurrence: US)
  Receive Date: 20181130
  Receipt Date: 20190926
  Transmission Date: 20191004
  Serious: Yes (Hospitalization)
  Sender: FDA-Public Use
  Company Number: US-ACTELION-A-NJ2017-153492

PATIENT
  Age: 67 Year
  Sex: Female

DRUGS (7)
  1. OPSUMIT [Suspect]
     Active Substance: MACITENTAN
     Indication: PULMONARY ARTERIAL HYPERTENSION
     Dosage: 10 MG, QD
     Route: 048
     Dates: start: 20170209
  2. PREVACID [Concomitant]
     Active Substance: LANSOPRAZOLE
  3. AMLODIPINE [Concomitant]
     Active Substance: AMLODIPINE BESYLATE
  4. ADCIRCA [Concomitant]
     Active Substance: TADALAFIL
  5. MELOXICAM. [Concomitant]
     Active Substance: MELOXICAM
  6. FUROSEMIDE. [Concomitant]
     Active Substance: FUROSEMIDE
  7. VITAMIN D [Concomitant]
     Active Substance: VITAMIN D NOS

REACTIONS (15)
  - Fluid intake restriction [Recovered/Resolved]
  - Ligament sprain [Recovering/Resolving]
  - Neuralgia [Unknown]
  - Therapy non-responder [Not Recovered/Not Resolved]
  - Arthritis [Unknown]
  - Back pain [Unknown]
  - Pain in extremity [Unknown]
  - Oral candidiasis [Recovering/Resolving]
  - Procedural pain [Unknown]
  - Dyspnoea [Not Recovered/Not Resolved]
  - Pulmonary fibrosis [Unknown]
  - Hyponatraemia [Recovered/Resolved]
  - Hip arthroplasty [Unknown]
  - Fatigue [Not Recovered/Not Resolved]
  - Groin pain [Unknown]

NARRATIVE: CASE EVENT DATE: 201703
